FAERS Safety Report 10457776 (Version 2)
Quarter: 2014Q3

REPORT INFORMATION
  Report Type: Spontaneous
  Country: US (occurrence: US)
  Receive Date: 20140916
  Receipt Date: 20140916
  Transmission Date: 20150326
  Serious: Yes (Hospitalization)
  Sender: FDA-Public Use
  Company Number: US-GLAXOSMITHKLINE-A0808522A

PATIENT
  Sex: Female
  Weight: 134.1 kg

DRUGS (1)
  1. AVANDIA [Suspect]
     Active Substance: ROSIGLITAZONE MALEATE
     Indication: TYPE 2 DIABETES MELLITUS
     Dosage: 4MG PER DAY
     Route: 065
     Dates: start: 200402, end: 200606

REACTIONS (3)
  - Brain injury [Unknown]
  - Transient ischaemic attack [Not Recovered/Not Resolved]
  - Ischaemic stroke [Unknown]
